FAERS Safety Report 21523261 (Version 2)
Quarter: 2023Q1

REPORT INFORMATION
  Report Type: Report from Study
  Country: US (occurrence: US)
  Receive Date: 20221029
  Receipt Date: 20230106
  Transmission Date: 20230417
  Serious: Yes (Hospitalization, Other)
  Sender: FDA-Public Use
  Company Number: US-ABBVIE-4179277

PATIENT
  Sex: Male

DRUGS (2)
  1. HUMIRA [Suspect]
     Active Substance: ADALIMUMAB
     Indication: Colitis ulcerative
     Dosage: CF
     Route: 058
     Dates: start: 20221001
  2. HUMIRA [Suspect]
     Active Substance: ADALIMUMAB
     Dosage: THE EVENT ONSET DATE OF METHICILLIN SENSITIVE STAPHYLOCOCCUS AUREUS INFECTION IN RIGHT ELBOW WHER...
     Route: 058

REACTIONS (4)
  - Atrial fibrillation [Unknown]
  - Staphylococcal infection [Unknown]
  - General physical health deterioration [Not Recovered/Not Resolved]
  - Medical device implantation [Unknown]
